FAERS Safety Report 9769908 (Version 2)
Quarter: 2013Q4

REPORT INFORMATION
  Report Type: Spontaneous
  Country: US (occurrence: US)
  Receive Date: 20131218
  Receipt Date: 20131218
  Transmission Date: 20140711
  Serious: No
  Sender: FDA-Public Use
  Company Number: US-VERTEX PHARMACEUTICALS INC-AE-2011-001024

PATIENT
  Age: 57 Year
  Sex: Female
  Weight: 54.55 kg

DRUGS (3)
  1. INCIVEK [Suspect]
     Indication: HEPATITIS C
     Route: 048
     Dates: start: 20110819
  2. PEGINTERFERON [Concomitant]
     Indication: HEPATITIS C
     Dates: start: 20110819
  3. RIBAVIRIN [Concomitant]
     Indication: HEPATITIS C
     Dates: start: 20110819

REACTIONS (2)
  - Drug eruption [Recovered/Resolved]
  - Nausea [Recovered/Resolved]
